FAERS Safety Report 10032632 (Version 5)
Quarter: 2014Q3

REPORT INFORMATION
  Report Type: Spontaneous
  Country: US (occurrence: US)
  Receive Date: 20140324
  Receipt Date: 20140808
  Transmission Date: 20150326
  Serious: Yes (Other)
  Sender: FDA-Public Use
  Company Number: US-GLAXOSMITHKLINE-A1066201A

PATIENT
  Age: 78 Year
  Sex: Female

DRUGS (1)
  1. ADVAIR HFA [Suspect]
     Active Substance: FLUTICASONE PROPIONATE\SALMETEROL XINAFOATE
     Indication: ASTHMA
     Route: 055
     Dates: start: 20120928

REACTIONS (3)
  - Speech disorder [Unknown]
  - Pharyngeal operation [Unknown]
  - Dysphemia [Unknown]

NARRATIVE: CASE EVENT DATE: 201402
